FAERS Safety Report 4679692-8 (Version None)
Quarter: 2005Q2

REPORT INFORMATION
  Report Type: 
  Country: None (occurrence: None)
  Receive Date: 20050531
  Receipt Date: 20050516
  Transmission Date: 20051028
  Serious: Yes (Hospitalization, Other)
  Sender: FDA-Public Use
  Company Number: 2005075982

PATIENT
  Age: 70 Year
  Sex: Male
  Weight: 159.6662 kg

DRUGS (7)
  1. BEXTRA [Suspect]
     Indication: ARTHRALGIA
     Dosage: 10 MG (10 MG, 1 IN 1 D), ORAL
     Route: 048
     Dates: start: 20040401, end: 20050505
  2. BEXTRA [Suspect]
     Indication: TRIGGER FINGER
     Dosage: 10 MG (10 MG, 1 IN 1 D), ORAL
     Route: 048
     Dates: start: 20040401, end: 20050505
  3. CELEBREX [Suspect]
     Indication: ARTHRALGIA
     Dosage: (1 IN 1 D), ORAL
     Route: 048
     Dates: start: 20030101, end: 20040301
  4. CELEBREX [Suspect]
     Indication: TRIGGER FINGER
     Dosage: (1 IN 1 D), ORAL
     Route: 048
     Dates: start: 20030101, end: 20040301
  5. VERAPAMIL [Concomitant]
  6. TRIAMTERENE (TRIAMTERENE) [Concomitant]
  7. GLYBURIDE [Concomitant]

REACTIONS (9)
  - DRUG INEFFECTIVE [None]
  - DRY SKIN [None]
  - HYPERKERATOSIS [None]
  - RASH MACULAR [None]
  - SKIN HAEMORRHAGE [None]
  - SKIN PAPILLOMA [None]
  - SKIN REACTION [None]
  - THYROID FUNCTION TEST ABNORMAL [None]
  - VITILIGO [None]
